FAERS Safety Report 19525979 (Version 1)
Quarter: 2021Q3

REPORT INFORMATION
  Report Type: Spontaneous
  Country: CN (occurrence: CN)
  Receive Date: 20210713
  Receipt Date: 20210713
  Transmission Date: 20211014
  Serious: Yes (Other)
  Sender: FDA-Public Use
  Company Number: CN-NOVOPROD-827552

PATIENT
  Age: 78 Year
  Sex: Female
  Weight: 58 kg

DRUGS (1)
  1. TRESIBA [Suspect]
     Active Substance: INSULIN DEGLUDEC
     Indication: TYPE 2 DIABETES MELLITUS
     Dosage: 14 IU, QD
     Route: 058
     Dates: start: 20210619, end: 20210619

REACTIONS (3)
  - Burning sensation [Recovering/Resolving]
  - Chest discomfort [Recovering/Resolving]
  - Skin warm [Recovering/Resolving]

NARRATIVE: CASE EVENT DATE: 20210619
